FAERS Safety Report 9485843 (Version 2)
Quarter: 2014Q2

REPORT INFORMATION
  Report Type: Spontaneous
  Country: US (occurrence: None)
  Receive Date: 20130821
  Receipt Date: 20140514
  Transmission Date: 20141212
  Serious: Yes (Hospitalization, Other)
  Sender: FDA-Public Use
  Company Number: ADR-2009-7187

PATIENT
  Age: 60 Year
  Sex: Female

DRUGS (1)
  1. LIORESAL INTRATHECAL [Suspect]
     Indication: MUSCLE SPASTICITY
     Route: 037

REACTIONS (8)
  - Skin disorder [None]
  - Medical device site reaction [None]
  - Device dislocation [None]
  - Weight decreased [None]
  - Medical device discomfort [None]
  - Implant site infection [None]
  - Wound secretion [None]
  - Weight decreased [None]
